FAERS Safety Report 8109895-1 (Version None)
Quarter: 2012Q1

REPORT INFORMATION
  Report Type: 
  Country: None (occurrence: None)
  Receive Date: 20120202
  Receipt Date: 20120122
  Transmission Date: 20120608
  Serious: Yes (Other)
  Sender: FDA-Public Use
  Company Number: AU-ABBOTT-11P-008-0861558-00

PATIENT
  Sex: Female

DRUGS (2)
  1. COLOZIDE [Concomitant]
     Indication: CROHN'S DISEASE
  2. HUMIRA [Suspect]
     Indication: CROHN'S DISEASE
     Dates: end: 20110801

REACTIONS (3)
  - MOUTH ULCERATION [None]
  - STEVENS-JOHNSON SYNDROME [None]
  - ERYTHEMA MULTIFORME [None]
